FAERS Safety Report 8051981-9 (Version None)
Quarter: 2012Q1

REPORT INFORMATION
  Report Type: 
  Country: None (occurrence: None)
  Receive Date: 20120118
  Receipt Date: 20120109
  Transmission Date: 20120608
  Serious: Yes (Other)
  Sender: FDA-Public Use
  Company Number: US-BAYER-2010-000685

PATIENT
  Sex: Female
  Weight: 79.36 kg

DRUGS (6)
  1. YASMIN [Suspect]
     Indication: PRODUCT USED FOR UNKNOWN INDICATION
  2. YAZ [Suspect]
     Indication: PREMENSTRUAL SYNDROME
  3. ESTROSTEP FE [Concomitant]
     Dosage: UNK
     Dates: start: 20070307, end: 20070531
  4. YAZ [Suspect]
     Indication: ACNE
     Dosage: UNK
     Dates: start: 20050101, end: 20100101
  5. TRIVORA-28 [Concomitant]
     Dosage: UNK
     Dates: start: 20070712, end: 20070727
  6. ESTROSTEP FE [Concomitant]
     Dosage: UNK
     Dates: start: 20061016, end: 20061215

REACTIONS (3)
  - GALLBLADDER INJURY [None]
  - INJURY [None]
  - CHOLELITHIASIS [None]
